FAERS Safety Report 4360758-7 (Version None)
Quarter: 2004Q2

REPORT INFORMATION
  Report Type: 
  Country: None (occurrence: None)
  Receive Date: 20040517
  Receipt Date: 20040505
  Transmission Date: 20050107
  Serious: Yes (Death)
  Sender: FDA-Public Use
  Company Number: 2004212398NO

PATIENT
  Age: 84 Year
  Sex: Female

DRUGS (1)
  1. FRAGMIN [Suspect]
     Indication: EMBOLISM
     Dosage: 5000 IU QD SUBCUTANEOUS
     Route: 058
     Dates: start: 20040401

REACTIONS (3)
  - CEREBELLAR HAEMORRHAGE [None]
  - CEREBRAL HAEMORRHAGE [None]
  - POST PROCEDURAL COMPLICATION [None]
